FAERS Safety Report 7513946-2 (Version None)
Quarter: 2011Q2

REPORT INFORMATION
  Report Type: 
  Country: None (occurrence: None)
  Receive Date: 20110531
  Receipt Date: 20081205
  Transmission Date: 20111010
  Serious: Yes (Other)
  Sender: FDA-Public Use
  Company Number: US-BAYER-200839693NA

PATIENT
  Age: 65 Year
  Sex: Female
  Weight: 66 kg

DRUGS (11)
  1. KYTRIL [Concomitant]
  2. HEPARIN [Concomitant]
     Dosage: 29000 U, UNK
     Route: 042
  3. CONTRAST MEDIA [Concomitant]
     Dosage: 110 ML, UNK
     Dates: start: 20040106
  4. TRASYLOL [Suspect]
     Indication: AORTIC VALVE REPLACEMENT
     Dosage: 100 ML, LOADING DOSE
     Route: 042
     Dates: start: 20040108, end: 20040108
  5. MANNITOL [Concomitant]
  6. TRASYLOL [Suspect]
     Dosage: INFUSION AT 25ML/HOUR
     Route: 042
     Dates: start: 20040108, end: 20040108
  7. RESTORIL [Concomitant]
  8. COZAAR [Concomitant]
     Dosage: 25 MG, UNK
     Route: 048
  9. VANCOMYCIN [Concomitant]
  10. NITROGLYCERIN [Concomitant]
     Route: 042
  11. EPHEDRINE [Concomitant]
     Dosage: 10 MG, UNK
     Route: 042

REACTIONS (2)
  - CEREBROVASCULAR ACCIDENT [None]
  - INJURY [None]
